FAERS Safety Report 8351925-6 (Version None)
Quarter: 2012Q2

REPORT INFORMATION
  Report Type: 
  Country: None (occurrence: None)
  Receive Date: 20120511
  Receipt Date: 20120508
  Transmission Date: 20120825
  Serious: No
  Sender: FDA-Public Use
  Company Number: US-PFIZER INC-2012021710

PATIENT
  Sex: Male

DRUGS (4)
  1. SUTENT [Suspect]
     Indication: METASTATIC RENAL CELL CARCINOMA
     Dosage: 50 MG, 1X/DAY 4 WEEKS ON AND 2 OFF
     Dates: start: 20120131
  2. SUTENT [Suspect]
     Indication: RENAL CELL CARCINOMA
     Dosage: UNK, 4 WKS ON 2 WK OFF
     Route: 048
     Dates: start: 20111227, end: 20120410
  3. SUTENT [Suspect]
     Indication: RENAL CANCER
     Dosage: 50 MG, 1X/DAY, 10 CYCLES
     Route: 048
     Dates: start: 20090601
  4. GLYBURIDE [Concomitant]
     Dosage: UNK

REACTIONS (5)
  - NERVOUS SYSTEM DISORDER [None]
  - DISEASE PROGRESSION [None]
  - RENAL CANCER METASTATIC [None]
  - RASH [None]
  - NEUROPATHY PERIPHERAL [None]
